FAERS Safety Report 13882669 (Version 5)
Quarter: 2017Q4

REPORT INFORMATION
  Report Type: Spontaneous
  Country: US (occurrence: US)
  Receive Date: 20170818
  Receipt Date: 20171130
  Transmission Date: 20180320
  Serious: Yes (Death, Hospitalization)
  Sender: FDA-Public Use
  Company Number: US-CELGENEUS-USA-20170803084

PATIENT
  Age: 77 Year
  Sex: Female

DRUGS (5)
  1. REVLIMID [Suspect]
     Active Substance: LENALIDOMIDE
     Indication: 5Q MINUS SYNDROME
     Dosage: 5 MILLIGRAM
     Route: 048
     Dates: start: 20170718, end: 20170808
  2. NEUPOGEN [Concomitant]
     Active Substance: FILGRASTIM
     Indication: NEUTROPENIA
  3. PROCRIT [Concomitant]
     Active Substance: ERYTHROPOIETIN
     Dosage: 60,000 UNITS/ML
     Route: 058
     Dates: start: 201705, end: 20170808
  4. NEUPOGEN [Concomitant]
     Active Substance: FILGRASTIM
     Indication: 5Q MINUS SYNDROME
     Dosage: 300 MCG/0.5 ML
     Route: 058
     Dates: start: 20170518, end: 20170706
  5. PROCRIT [Concomitant]
     Active Substance: ERYTHROPOIETIN
     Indication: 5Q MINUS SYNDROME
     Dosage: 40,000 UNITS/ML
     Route: 058
     Dates: start: 201704, end: 20170808

REACTIONS (2)
  - Pneumonia [Fatal]
  - Myelodysplastic syndrome [Fatal]

NARRATIVE: CASE EVENT DATE: 201708
